FAERS Safety Report 15149760 (Version 1)
Quarter: 2018Q3

REPORT INFORMATION
  Report Type: Spontaneous
  Country: US (occurrence: US)
  Receive Date: 20180619
  Receipt Date: 20180619
  Transmission Date: 20181010
  Serious: Yes (Disabling)
  Sender: FDA-Public Use
  Company Number: None

PATIENT
  Age: 26 Year
  Sex: Male
  Weight: 63 kg

DRUGS (1)
  1. GADAVIST [Suspect]
     Active Substance: GADOBUTROL

REACTIONS (5)
  - Arthralgia [None]
  - Skin burning sensation [None]
  - Muscle twitching [None]
  - Skin tightness [None]
  - Fatigue [None]

NARRATIVE: CASE EVENT DATE: 20180516
